FAERS Safety Report 12653269 (Version 1)
Quarter: 2016Q3

REPORT INFORMATION
  Report Type: Report from Study
  Country: CA (occurrence: CA)
  Receive Date: 20160815
  Receipt Date: 20160815
  Transmission Date: 20161109
  Serious: Yes (Other)
  Sender: FDA-Public Use
  Company Number: PHHY2013CA047733

PATIENT
  Age: 70 Year
  Sex: Female

DRUGS (1)
  1. SANDOSTATIN LAR DEPOT [Suspect]
     Active Substance: OCTREOTIDE ACETATE
     Indication: CARCINOID TUMOUR
     Dosage: 30 MG, QMO (EVERY 4 WEEKS)
     Route: 030
     Dates: start: 20090518, end: 20160405

REACTIONS (7)
  - Neuroendocrine tumour [Unknown]
  - Blood pressure systolic increased [Not Recovered/Not Resolved]
  - Injection site pain [Unknown]
  - Cough [Unknown]
  - Blood pressure increased [Unknown]
  - Underdose [Unknown]
  - Syringe issue [Unknown]

NARRATIVE: CASE EVENT DATE: 20130408
